FAERS Safety Report 4685479-2 (Version None)
Quarter: 2005Q2

REPORT INFORMATION
  Report Type: 
  Country: None (occurrence: None)
  Receive Date: 20050608
  Receipt Date: 20050530
  Transmission Date: 20051028
  Serious: Yes (Other)
  Sender: FDA-Public Use
  Company Number: PHBS2005IT07753

PATIENT
  Age: 42 Year
  Sex: Female

DRUGS (2)
  1. ZOMETA [Suspect]
     Indication: METASTASES TO BONE
     Route: 042
     Dates: start: 20040122, end: 20041206
  2. CHEMOTHERAPEUTICS,OTHER [Concomitant]

REACTIONS (1)
  - ASEPTIC NECROSIS BONE [None]
